FAERS Safety Report 5885649-1 (Version None)
Quarter: 2008Q3

REPORT INFORMATION
  Report Type: 
  Country: None (occurrence: None)
  Receive Date: 20080912
  Receipt Date: 20080827
  Transmission Date: 20090109
  Serious: Yes (Hospitalization)
  Sender: FDA-Public Use
  Company Number: DSA_32373_2008

PATIENT
  Sex: Male

DRUGS (2)
  1. TILDIEM (TILDIEM - DILTIAZEM HYDROCHLORIDE) 60 MG (NOT SPECIFIED) [Suspect]
     Indication: DRUG USE FOR UNKNOWN INDICATION
     Dosage: 60 MG   ORAL
     Route: 048
     Dates: end: 20080710
  2. HYDROCHLOROTHIAZIDE [Suspect]
     Indication: DRUG USE FOR UNKNOWN INDICATION
     Dosage: DF ORAL
     Route: 048
     Dates: start: 20080630, end: 20080710

REACTIONS (9)
  - CHOLESTASIS [None]
  - CONFUSIONAL STATE [None]
  - CYTOLYTIC HEPATITIS [None]
  - ERYTHEMA MULTIFORME [None]
  - LYMPHADENOPATHY [None]
  - PYREXIA [None]
  - RESPIRATORY TRACT CONGESTION [None]
  - TOXIC SKIN ERUPTION [None]
  - WHITE BLOOD CELL COUNT DECREASED [None]
